FAERS Safety Report 20465597 (Version 1)
Quarter: 2022Q1

REPORT INFORMATION
  Report Type: Spontaneous
  Country: IT (occurrence: IT)
  Receive Date: 20220212
  Receipt Date: 20220212
  Transmission Date: 20220424
  Serious: Yes (Other)
  Sender: FDA-Public Use
  Company Number: IT-ALXN-A202201763

PATIENT
  Age: 75 Year
  Sex: Female

DRUGS (3)
  1. ONDEXXYA [Suspect]
     Active Substance: ANDEXANET ALFA
     Indication: Product used for unknown indication
     Dosage: 400 MG BOLUS IN 15 MINUTES
     Route: 065
  2. ONDEXXYA [Suspect]
     Active Substance: ANDEXANET ALFA
     Dosage: 480 MG INFUSED OVER 120 MINUTES (LOW DOSAGE)
     Route: 065
  3. APIXABAN [Concomitant]
     Active Substance: APIXABAN
     Indication: Atrial fibrillation
     Dosage: 5 MG, BID
     Route: 065

REACTIONS (2)
  - Cerebral haemorrhage [Unknown]
  - Blood pressure increased [Unknown]
